FAERS Safety Report 9240310 (Version 1)
Quarter: 2013Q2

REPORT INFORMATION
  Report Type: Spontaneous
  Country: US (occurrence: None)
  Receive Date: 20130418
  Receipt Date: 20130418
  Transmission Date: 20140414
  Serious: Yes (Other)
  Sender: FDA-Public Use
  Company Number: None

PATIENT
  Age: 69 Year
  Sex: Female
  Weight: 61 kg

DRUGS (13)
  1. METHENAMINE [Suspect]
     Indication: PROPHYLAXIS URINARY TRACT INFECTION
     Route: 048
     Dates: start: 20110501, end: 20120731
  2. CALCIUM CARBONATE [Concomitant]
  3. MESELAMINE [Concomitant]
  4. VITAMIN C [Concomitant]
  5. CITALOPRAM [Concomitant]
  6. LACTOBACILLUS [Concomitant]
  7. ESOMEPRAZOLE [Concomitant]
  8. POTASSIUM [Concomitant]
  9. LOVAZA [Concomitant]
  10. IBANDRONATE [Concomitant]
  11. METHENAMINE [Concomitant]
  12. PRED [Concomitant]
  13. FORTE EYE DROPS [Concomitant]

REACTIONS (3)
  - White blood cell count increased [None]
  - Chronic myeloid leukaemia [None]
  - Hyperuricaemia [None]
